FAERS Safety Report 6623251-4 (Version None)
Quarter: 2010Q1

REPORT INFORMATION
  Report Type: 
  Country: None (occurrence: None)
  Receive Date: 20100310
  Receipt Date: 20091123
  Transmission Date: 20100710
  Serious: No
  Sender: FDA-Public Use
  Company Number: US-BIOGENIDEC-2009BI038201

PATIENT
  Sex: Female

DRUGS (5)
  1. AVONEX [Suspect]
     Indication: MULTIPLE SCLEROSIS
     Route: 030
     Dates: start: 20020101, end: 20030101
  2. AVONEX [Suspect]
     Route: 030
     Dates: start: 20030101
  3. AVONEX [Suspect]
     Route: 030
  4. EXTRA STRENGHT TYLENOL [Concomitant]
     Indication: PREMEDICATION
     Route: 048
  5. MEDICATIONS (NOS) [Concomitant]
     Indication: RHEUMATOID ARTHRITIS

REACTIONS (3)
  - BLOOD CHOLESTEROL INCREASED [None]
  - DECREASED IMMUNE RESPONSIVENESS [None]
  - INFLUENZA LIKE ILLNESS [None]
